FAERS Safety Report 6135461-3 (Version None)
Quarter: 2009Q1

REPORT INFORMATION
  Report Type: 
  Country: None (occurrence: None)
  Receive Date: 20090327
  Receipt Date: 20090320
  Transmission Date: 20090719
  Serious: Yes (Hospitalization)
  Sender: FDA-Public Use
  Company Number: A0754667A

PATIENT
  Age: 46 Year
  Sex: Male
  Weight: 136.4 kg

DRUGS (6)
  1. AVANDIA [Suspect]
     Dosage: 8MG PER DAY
     Route: 048
     Dates: start: 20030401, end: 20060301
  2. GLUCOPHAGE [Concomitant]
  3. METFORMIN [Concomitant]
  4. INSULIN [Concomitant]
  5. GLUCOTROL XL [Concomitant]
  6. CELEBREX [Concomitant]

REACTIONS (6)
  - ARRHYTHMIA [None]
  - CARDIAC DISORDER [None]
  - CARDIAC FAILURE CONGESTIVE [None]
  - MYOCARDIAL INFARCTION [None]
  - PERIPHERAL VASCULAR DISORDER [None]
  - TRANSIENT ISCHAEMIC ATTACK [None]
